FAERS Safety Report 7208923-5 (Version None)
Quarter: 2011Q1

REPORT INFORMATION
  Report Type: 
  Country: None (occurrence: None)
  Receive Date: 20110104
  Receipt Date: 20101220
  Transmission Date: 20110831
  Serious: Yes (Other)
  Sender: FDA-Public Use
  Company Number: GB-WATSON-2010-16708

PATIENT
  Age: 56 Year
  Sex: Female

DRUGS (2)
  1. ATORVASTATIN [Suspect]
     Indication: PRODUCT USED FOR UNKNOWN INDICATION
     Dosage: 10 MG, UNKNOWN
  2. SIMVASTATIN [Suspect]
     Indication: PRODUCT USED FOR UNKNOWN INDICATION
     Dosage: 40 MG, UNKNOWN

REACTIONS (4)
  - HIGH DENSITY LIPOPROTEIN DECREASED [None]
  - APOLIPOPROTEIN A-I DECREASED [None]
  - MYALGIA [None]
  - PARADOXICAL DRUG REACTION [None]
